FAERS Safety Report 7204866-1 (Version None)
Quarter: 2010Q4

REPORT INFORMATION
  Report Type: 
  Country: None (occurrence: None)
  Receive Date: 20101230
  Receipt Date: 20101221
  Transmission Date: 20110411
  Serious: Yes (Hospitalization)
  Sender: FDA-Public Use
  Company Number: US-ABBOTT-10P-163-0693121-00

PATIENT
  Sex: Female
  Weight: 47.67 kg

DRUGS (6)
  1. HUMIRA [Suspect]
     Indication: RHEUMATOID ARTHRITIS
     Dates: start: 20080101
  2. DILANTIN [Concomitant]
     Indication: CONVULSION
  3. CREON [Concomitant]
     Indication: MEDICAL DIET
  4. KLOR-CON [Concomitant]
     Indication: MINERAL SUPPLEMENTATION
  5. AVISTA [Concomitant]
     Indication: OSTEOPOROSIS
  6. DICYCLOMINE [Concomitant]
     Indication: MEDICAL DIET

REACTIONS (6)
  - ABASIA [None]
  - ARTHRITIS [None]
  - EFFUSION [None]
  - MUSCLE SPASMS [None]
  - OROPHARYNGEAL PAIN [None]
  - OSTEOARTHRITIS [None]
